FAERS Safety Report 18629108 (Version 1)
Quarter: 2020Q4

REPORT INFORMATION
  Report Type: Spontaneous
  Country: US (occurrence: US)
  Receive Date: 20201217
  Receipt Date: 20201217
  Transmission Date: 20210114
  Serious: Yes (Other)
  Sender: FDA-Public Use
  Company Number: US-BAYER-2020-271635

PATIENT
  Age: 78 Year
  Sex: Female

DRUGS (2)
  1. CORICIDIN HBP MAXIMUM STRENGTH COLD, COUGH AND FLU [Suspect]
     Active Substance: ACETAMINOPHEN\DEXTROMETHORPHAN HYDROBROMIDE\GUAIFENESIN
     Dosage: 1 DF, QD
     Route: 048
     Dates: start: 20200912, end: 20200912
  2. CORICIDIN HBP COUGH AND COLD [Concomitant]
     Active Substance: CHLORPHENIRAMINE MALEATE\DEXTROMETHORPHAN HYDROBROMIDE

REACTIONS (4)
  - Foreign body in throat [Recovered/Resolved with Sequelae]
  - Oropharyngeal pain [Unknown]
  - Incorrect dose administered [Unknown]
  - Throat irritation [Unknown]

NARRATIVE: CASE EVENT DATE: 20200912
